FAERS Safety Report 9980881 (Version 1)
Quarter: 2014Q1

REPORT INFORMATION
  Report Type: Spontaneous
  Country: US (occurrence: US)
  Receive Date: 20140307
  Receipt Date: 20140307
  Transmission Date: 20141002
  Serious: No
  Sender: FDA-Public Use
  Company Number: US-GLAXOSMITHKLINE-A1015830A

PATIENT
  Sex: Male

DRUGS (1)
  1. REQUIP [Suspect]
     Indication: PRODUCT USED FOR UNKNOWN INDICATION
     Dosage: 1MG UNKNOWN
     Route: 048

REACTIONS (8)
  - Drug dispensing error [Unknown]
  - Mental disorder [Unknown]
  - Abnormal behaviour [Unknown]
  - Aggression [Unknown]
  - Disturbance in attention [Unknown]
  - Headache [Unknown]
  - Gastric disorder [Unknown]
  - Vomiting [Unknown]
